FAERS Safety Report 22397025 (Version 1)
Quarter: 2023Q2

REPORT INFORMATION
  Report Type: Spontaneous
  Country: US (occurrence: US)
  Receive Date: 20230602
  Receipt Date: 20230602
  Transmission Date: 20230721
  Serious: No
  Sender: FDA-Public Use
  Company Number: US-ALLERGAN-2302628US

PATIENT
  Age: 33 Year
  Sex: Female
  Weight: 62.59 kg

DRUGS (18)
  1. BOTOX [Suspect]
     Active Substance: ONABOTULINUMTOXINA
     Indication: Migraine
     Dosage: UNK, SINGLE
     Dates: start: 20230116, end: 20230116
  2. BOTOX [Suspect]
     Active Substance: ONABOTULINUMTOXINA
     Dosage: UNK, SINGLE
     Dates: start: 20230116, end: 20230116
  3. BOTOX [Suspect]
     Active Substance: ONABOTULINUMTOXINA
     Dosage: UNK, SINGLE
     Dates: start: 20230116, end: 20230116
  4. BOTOX [Suspect]
     Active Substance: ONABOTULINUMTOXINA
     Dosage: UNK, SINGLE
     Dates: start: 20230116, end: 20230116
  5. BOTOX [Suspect]
     Active Substance: ONABOTULINUMTOXINA
     Dosage: UNK, SINGLE
     Dates: start: 20230116, end: 20230116
  6. BOTOX [Suspect]
     Active Substance: ONABOTULINUMTOXINA
     Dosage: UNK, SINGLE
     Dates: start: 20230116, end: 20230116
  7. BOTOX [Suspect]
     Active Substance: ONABOTULINUMTOXINA
     Dosage: UNK, SINGLE
     Dates: start: 20230116, end: 20230116
  8. ALBUTEROL SULFATE [Concomitant]
     Active Substance: ALBUTEROL SULFATE
     Indication: Wheezing
     Dosage: INHALE 1 2 PUTTS INTO THE LUNGS EVERY 4 HOURS AS NEEDED FOR WHEEZING.
     Dates: start: 20210812
  9. HYDROXYZINE [Concomitant]
     Active Substance: HYDROXYZINE HYDROCHLORIDE
     Indication: Sleep disorder
     Dosage: 10 MG, TAKE ONL IABLET BY MC TABLET MOU 1 EL EVERY DAY AS NEEDED FOR ANXIL I Y AND TAKE TWO TABLE I
     Route: 048
     Dates: start: 20220815
  10. HYDROXYZINE [Concomitant]
     Active Substance: HYDROXYZINE HYDROCHLORIDE
     Indication: Anxiety
  11. LASMALIN [Concomitant]
     Indication: Headache
     Dosage: UNK, PRN, LAKE 1 (ONE) TABLET BY MOUTH AS NEEDED (FAKE WITHIN 30MINS OF HEADACHE, DO NOT HIKE MORE T
     Dates: start: 20221122
  12. ONDANSETRON HYDROCHLORIDE [Concomitant]
     Active Substance: ONDANSETRON HYDROCHLORIDE
     Indication: Nausea
     Dosage: TAKE 1 (ONE) TABLET BY MOUTH EVERY 8 (EIGHT) HOURS AS NEEDED FOR NAUSEA.
     Route: 048
  13. PANTOPRAZOLE SODIUM [Concomitant]
     Active Substance: PANTOPRAZOLE SODIUM
     Indication: Product used for unknown indication
     Dosage: TAKE 1 (ONE) TABLET BY MOUTH DAILY.
     Route: 048
  14. sectraline [Concomitant]
     Indication: Affective disorder
     Dosage: 200 MG,TAKE 200 MG BY MOUTH DAILY. FOR MOOD
     Route: 048
     Dates: start: 20210602
  15. BECLOMETHASONE [Concomitant]
     Active Substance: BECLOMETHASONE
     Indication: Product used for unknown indication
     Dosage: INHALE 1 PUFF INTO THE LUNGS 2 (TWO) TIMES DAILY. - INHALATION
     Dates: start: 20150728, end: 20230311
  16. BENADRYL [Concomitant]
     Active Substance: DIPHENHYDRAMINE HYDROCHLORIDE
  17. METHYLPREDNISOLONE [Concomitant]
     Active Substance: METHYLPREDNISOLONE
     Indication: Product used for unknown indication
     Dosage: 21 TAB
  18. LASMIDITAN [Concomitant]
     Active Substance: LASMIDITAN
     Indication: Product used for unknown indication
     Dosage: UNK
     Dates: start: 20221222

REACTIONS (5)
  - Mental disorder [Recovered/Resolved with Sequelae]
  - Swelling [Recovered/Resolved with Sequelae]
  - Pruritus [Recovered/Resolved with Sequelae]
  - Eye irritation [Unknown]
  - Nausea [Unknown]

NARRATIVE: CASE EVENT DATE: 20230116
